FAERS Safety Report 6377724-2 (Version None)
Quarter: 2009Q3

REPORT INFORMATION
  Report Type: 
  Country: None (occurrence: None)
  Receive Date: 20090925
  Receipt Date: 20090914
  Transmission Date: 20100115
  Serious: Yes (Hospitalization, Other)
  Sender: FDA-Public Use
  Company Number: JP-PFIZER INC-2009263415

PATIENT
  Age: 61 Year

DRUGS (5)
  1. XALATAN [Suspect]
     Indication: GLAUCOMA
     Dosage: 1 GTT, 1X/DAY
     Route: 047
     Dates: start: 20090722, end: 20090727
  2. ALCOHOL [Suspect]
  3. BLOPRESS [Concomitant]
     Indication: HYPERTENSION
     Dosage: UNK
     Route: 048
  4. TAMSULOSIN HYDROCHLORIDE [Concomitant]
     Indication: BENIGN PROSTATIC HYPERPLASIA
     Dosage: UNK
     Route: 048
  5. NORVASC [Concomitant]
     Dosage: UNK
     Route: 048

REACTIONS (3)
  - BLINDNESS [None]
  - INTRAOCULAR PRESSURE INCREASED [None]
  - NAUSEA [None]
